FAERS Safety Report 9465666 (Version 1)
Quarter: 2013Q3

REPORT INFORMATION
  Report Type: Spontaneous
  Country: DE (occurrence: DE)
  Receive Date: 20130820
  Receipt Date: 20130820
  Transmission Date: 20140515
  Serious: Yes (Other)
  Sender: FDA-Public Use
  Company Number: DE-PFIZER INC-2013238911

PATIENT
  Sex: Male

DRUGS (1)
  1. FASTJEKT [Suspect]
     Indication: ANAPHYLACTOID REACTION
     Dosage: 1 IN 1 TOTAL
     Dates: start: 2013

REACTIONS (2)
  - Wrong technique in drug usage process [Recovered/Resolved]
  - Injury associated with device [Recovered/Resolved]
